FAERS Safety Report 23408204 (Version 1)
Quarter: 2024Q1

REPORT INFORMATION
  Report Type: Report from Study
  Country: US (occurrence: US)
  Receive Date: 20240117
  Receipt Date: 20240117
  Transmission Date: 20240410
  Serious: No
  Sender: FDA-Public Use
  Company Number: US-AstraZeneca-CH-00543193A

PATIENT

DRUGS (1)
  1. STRENSIQ [Suspect]
     Active Substance: ASFOTASE ALFA
     Indication: Product used for unknown indication
     Dosage: UNK
     Route: 065

REACTIONS (4)
  - COVID-19 [Recovered/Resolved]
  - Arthralgia [Not Recovered/Not Resolved]
  - Needle fatigue [Recovered/Resolved]
  - Product administration error [Unknown]
